FAERS Safety Report 4986342-X (Version None)
Quarter: 2006Q2

REPORT INFORMATION
  Report Type: 
  Country: None (occurrence: None)
  Receive Date: 20060428
  Receipt Date: 20060329
  Transmission Date: 20061013
  Serious: Yes (Other)
  Sender: FDA-Public Use
  Company Number: CA-GLAXOSMITHKLINE-A0600600A

PATIENT
  Age: 60 Year
  Sex: Female
  Weight: 65.5 kg

DRUGS (3)
  1. RELAFEN [Suspect]
     Dosage: 500MG TWICE PER DAY
     Route: 048
     Dates: start: 20051229
  2. PREVACID [Concomitant]
     Dosage: 30MG PER DAY
     Dates: start: 19980101
  3. SYNTHROID [Concomitant]
     Dates: start: 19980101

REACTIONS (3)
  - RETINAL TEAR [None]
  - VISION BLURRED [None]
  - VISUAL DISTURBANCE [None]
